FAERS Safety Report 12669408 (Version 2)
Quarter: 2016Q3

REPORT INFORMATION
  Report Type: Report from Study
  Country: NL (occurrence: NL)
  Receive Date: 20160819
  Receipt Date: 20160902
  Transmission Date: 20161109
  Serious: Yes (Hospitalization)
  Sender: FDA-Public Use
  Company Number: NL-BAYER-2016-156654

PATIENT
  Age: 74 Year
  Sex: Female
  Weight: 56.1 kg

DRUGS (5)
  1. STIVARGA [Suspect]
     Active Substance: REGORAFENIB
     Indication: ADENOCARCINOMA OF COLON
     Route: 048
  2. VALACICLOVIR [Concomitant]
     Active Substance: VALACYCLOVIR HYDROCHLORIDE
     Dosage: UNK
     Dates: start: 2014
  3. METOCLOPRAMIDE. [Concomitant]
     Active Substance: METOCLOPRAMIDE
     Dosage: DAILY DOSE 10 MG
     Dates: start: 20160624
  4. INNOHEP [TINZAPARIN SODIUM] [Concomitant]
     Dosage: 14000 IU, QD
     Dates: start: 2014
  5. LOPERAMIDE [Concomitant]
     Active Substance: LOPERAMIDE
     Dosage: 2 MG, QD
     Dates: start: 2012

REACTIONS (2)
  - Dehydration [Recovering/Resolving]
  - Urinary tract infection [None]

NARRATIVE: CASE EVENT DATE: 20160725
